FAERS Safety Report 8352044-5 (Version None)
Quarter: 2012Q2

REPORT INFORMATION
  Report Type: 
  Country: None (occurrence: None)
  Receive Date: 20120511
  Receipt Date: 20120503
  Transmission Date: 20120825
  Serious: Yes (Hospitalization)
  Sender: FDA-Public Use
  Company Number: US-BAYER-2011-111112

PATIENT
  Age: 24 Year
  Sex: Female
  Weight: 83.9 kg

DRUGS (1)
  1. YAZ [Suspect]
     Dosage: UNK
     Route: 048
     Dates: start: 20081001, end: 20091201

REACTIONS (11)
  - SCAR [None]
  - INJURY [None]
  - DYSPEPSIA [None]
  - GASTROOESOPHAGEAL REFLUX DISEASE [None]
  - BILIARY DYSKINESIA [None]
  - ANXIETY [None]
  - PAIN [None]
  - GENERAL PHYSICAL HEALTH DETERIORATION [None]
  - EMOTIONAL DISTRESS [None]
  - GALLBLADDER INJURY [None]
  - DIARRHOEA [None]
